FAERS Safety Report 9338941 (Version 4)
Quarter: 2013Q4

REPORT INFORMATION
  Report Type: Spontaneous
  Country: GB (occurrence: GB)
  Receive Date: 20130610
  Receipt Date: 20131126
  Transmission Date: 20140711
  Serious: Yes (Hospitalization, Other)
  Sender: FDA-Public Use
  Company Number: GB-PFIZER INC-2013171059

PATIENT
  Age: 3 Year
  Sex: Male
  Weight: 15 kg

DRUGS (14)
  1. DOXORUBICIN HCL [Suspect]
     Indication: NEOPLASM MALIGNANT
     Dosage: 2 MG, 1X/DAY
     Route: 040
     Dates: start: 20130504
  2. IFOSFAMIDE [Suspect]
     Indication: NEOPLASM MALIGNANT
     Dosage: 2 MG, 1X/DAY
     Route: 041
     Dates: start: 20130504
  3. VINCRISTINE SULFATE [Suspect]
     Indication: NEOPLASM MALIGNANT
     Dosage: 2 MG, 1X/DAY
     Route: 040
     Dates: start: 20130504
  4. ACTINOMYCIN D [Suspect]
     Indication: NEOPLASM MALIGNANT
     Dosage: 1 MG, 1X/DAY
     Route: 040
     Dates: start: 20130504
  5. LYOVAC-COSMEGEN [Suspect]
     Indication: NEOPLASM MALIGNANT
     Dosage: 1 MG, 1X/DAY
     Route: 050
     Dates: start: 20130504
  6. ONDANSETRON [Concomitant]
     Dosage: 7.5 MG, UNK
     Dates: start: 20130504
  7. DEXAMETHASONE [Concomitant]
     Dosage: 2.8 MG, UNK
     Dates: start: 20130504, end: 20130505
  8. LEVOMEPROMAZINE [Concomitant]
     Dosage: 1.6 MG, UNK
     Dates: start: 20130504
  9. PARACETAMOL [Concomitant]
     Dosage: 240 MG, UNK
     Dates: start: 20130430
  10. PARACETAMOL [Concomitant]
     Dosage: 960 MG, UNK
     Dates: start: 20130506
  11. TAZOCIN [Concomitant]
     Dosage: 4.2 G, UNK
     Dates: start: 20130513
  12. MOVICOL [Concomitant]
  13. METOCLOPRAMIDE [Concomitant]
     Dosage: 2.5 MG, UNK
     Dates: start: 20130504
  14. PANTOPRAZOLE [Concomitant]
     Dosage: 16 MG, UNK
     Dates: start: 20130505

REACTIONS (3)
  - Febrile neutropenia [Unknown]
  - Hypophagia [Unknown]
  - Pleural effusion [Unknown]
